FAERS Safety Report 6350502-6 (Version None)
Quarter: 2009Q3

REPORT INFORMATION
  Report Type: 
  Country: None (occurrence: None)
  Receive Date: 20090911
  Receipt Date: 20090622
  Transmission Date: 20100115
  Serious: No
  Sender: FDA-Public Use
  Company Number: US-ABBOTT-07P-163-0364315-00

PATIENT
  Sex: Male
  Weight: 74.91 kg

DRUGS (4)
  1. HUMIRA [Suspect]
     Indication: COLITIS
     Route: 058
     Dates: start: 20070331, end: 20070331
  2. HUMIRA [Suspect]
     Indication: CROHN'S DISEASE
  3. IMITREX [Concomitant]
     Indication: MIGRAINE
     Route: 048
  4. HYDROMORPHONE HYDROCHLORIDE [Concomitant]
     Indication: HEADACHE
     Route: 048

REACTIONS (5)
  - HEADACHE [None]
  - INCORRECT DOSE ADMINISTERED [None]
  - LOSS OF CONSCIOUSNESS [None]
  - NIGHT SWEATS [None]
  - PYREXIA [None]
